FAERS Safety Report 7699869-7 (Version None)
Quarter: 2011Q3

REPORT INFORMATION
  Report Type: 
  Country: None (occurrence: None)
  Receive Date: 20110822
  Receipt Date: 20110808
  Transmission Date: 20111222
  Serious: Yes (Hospitalization)
  Sender: FDA-Public Use
  Company Number: GB-MYLANLABS-2011S1016048

PATIENT
  Age: 44 Year
  Sex: Male

DRUGS (3)
  1. OLANZAPINE [Suspect]
     Indication: PRODUCT USED FOR UNKNOWN INDICATION
  2. BISOPROLOL FUMARATE [Suspect]
     Indication: PRODUCT USED FOR UNKNOWN INDICATION
  3. ACETAMINOPHEN [Suspect]
     Indication: PRODUCT USED FOR UNKNOWN INDICATION

REACTIONS (13)
  - ASPERGILLOMA [None]
  - HYPOKALAEMIA [None]
  - COMA [None]
  - HYPOGLYCAEMIA [None]
  - HYPOPHOSPHATAEMIA [None]
  - HYPOTHERMIA [None]
  - SEPSIS [None]
  - INTENTIONAL OVERDOSE [None]
  - COMA SCALE ABNORMAL [None]
  - BRADYCARDIA [None]
  - HYPOTENSION [None]
  - CACHEXIA [None]
  - TRANSAMINASES INCREASED [None]
